FAERS Safety Report 10714538 (Version 6)
Quarter: 2015Q2

REPORT INFORMATION
  Report Type: Report from Study
  Country: JP (occurrence: JP)
  Receive Date: 20150115
  Receipt Date: 20150529
  Transmission Date: 20150821
  Serious: Yes (Death, Hospitalization)
  Sender: FDA-Public Use
  Company Number: JP-BAYER-2014-135236

PATIENT
  Age: 62 Year
  Sex: Male
  Weight: 76 kg

DRUGS (6)
  1. LIPIODOL [Concomitant]
     Active Substance: ETHIODIZED OIL
     Indication: HEPATOCELLULAR CARCINOMA
     Route: 065
  2. LIVACT [Concomitant]
     Active Substance: AMINO ACIDS
     Dosage: DAILY DOSE 12.45 G
  3. EPIRUBICIN [Concomitant]
     Active Substance: EPIRUBICIN
     Indication: HEPATOCELLULAR CARCINOMA
     Dosage: DAILY DOSE 50 MG
     Route: 065
  4. MIRIPLA [Concomitant]
     Dosage: DAILY DOSE 120 MG
  5. URSODEOXYCHOLIC ACID [Concomitant]
     Active Substance: URSODIOL
     Dosage: DAILY DOSE 300 MG
  6. SORAFENIB [Suspect]
     Active Substance: SORAFENIB
     Indication: HEPATOCELLULAR CARCINOMA
     Dosage: DAILY DOSE 400 MG
     Route: 048
     Dates: start: 20140808, end: 20140908

REACTIONS (4)
  - Duodenal ulcer [Unknown]
  - Neoplasm malignant [Fatal]
  - Vomiting [Unknown]
  - Ascites [Not Recovered/Not Resolved]

NARRATIVE: CASE EVENT DATE: 20140901
